FAERS Safety Report 10500222 (Version 1)
Quarter: 2014Q4

REPORT INFORMATION
  Report Type: Spontaneous
  Country: US (occurrence: US)
  Receive Date: 20141006
  Receipt Date: 20141006
  Transmission Date: 20150528
  Serious: No
  Sender: FDA-Public Use
  Company Number: US-AMGEN INC.-USASP2014051647

PATIENT
  Age: 80 Year
  Sex: Female

DRUGS (7)
  1. CURCUMIN [Concomitant]
     Active Substance: CURCUMIN
  2. CALCIUM [Concomitant]
     Active Substance: CALCIUM
  3. PLANT STEROLS PLUS [Concomitant]
  4. PROLIA [Suspect]
     Active Substance: DENOSUMAB
     Indication: OSTEOPOROSIS
     Dosage: 60 MG/ML, UNK
     Route: 065
     Dates: start: 201206
  5. RED YEAST RICE [Concomitant]
     Active Substance: DIETARY SUPPLEMENT
  6. MULTIVITAMIN                       /00097801/ [Concomitant]
     Active Substance: VITAMINS
  7. WHITE WILLOW BARK [Concomitant]

REACTIONS (2)
  - Bone pain [Unknown]
  - Pain [Unknown]
